FAERS Safety Report 12104766 (Version 1)
Quarter: 2016Q1

REPORT INFORMATION
  Report Type: Report from Study
  Country: PL (occurrence: PL)
  Receive Date: 20160223
  Receipt Date: 20160223
  Transmission Date: 20160526
  Serious: Yes (Hospitalization)
  Sender: FDA-Public Use
  Company Number: PL-JNJFOC-20151217656

PATIENT
  Age: 52 Year
  Sex: Male
  Weight: 89 kg

DRUGS (10)
  1. USTEKINUMAB [Suspect]
     Active Substance: USTEKINUMAB
     Indication: CROHN^S DISEASE
     Route: 058
  2. PENTASA [Concomitant]
     Active Substance: MESALAMINE
     Route: 065
     Dates: start: 20090625
  3. MESALAMINE. [Concomitant]
     Active Substance: MESALAMINE
     Indication: CROHN^S DISEASE
     Route: 054
     Dates: start: 20140128
  4. PRESTARIUM [Concomitant]
     Active Substance: PERINDOPRIL
     Route: 065
  5. USTEKINUMAB [Suspect]
     Active Substance: USTEKINUMAB
     Indication: CROHN^S DISEASE
     Route: 058
     Dates: start: 20131021
  6. GASEC [Concomitant]
     Indication: GASTRITIS
     Route: 048
     Dates: start: 20140324
  7. AZATHIOPRINE. [Concomitant]
     Active Substance: AZATHIOPRINE
     Route: 065
     Dates: start: 201303
  8. ZALDIAR [Concomitant]
     Active Substance: ACETAMINOPHEN\TRAMADOL HYDROCHLORIDE
     Route: 048
  9. PREDNISONE. [Concomitant]
     Active Substance: PREDNISONE
     Route: 065
     Dates: start: 20121201
  10. METOPROLOL. [Concomitant]
     Active Substance: METOPROLOL
     Route: 065

REACTIONS (1)
  - Wound abscess [Recovered/Resolved]

NARRATIVE: CASE EVENT DATE: 20151025
